FAERS Safety Report 9364898 (Version 2)
Quarter: 2013Q3

REPORT INFORMATION
  Report Type: Spontaneous
  Country: CN (occurrence: CN)
  Receive Date: 20130624
  Receipt Date: 20130708
  Transmission Date: 20140515
  Serious: Yes (Life-Threatening, Other)
  Sender: FDA-Public Use
  Company Number: CN-GLAXOSMITHKLINE-B0901679A

PATIENT
  Age: 63 Year
  Sex: Female

DRUGS (2)
  1. CEFUROXIME AXETIL [Suspect]
     Indication: PRODUCT USED FOR UNKNOWN INDICATION
     Dosage: 2TAB PER DAY
     Route: 048
  2. ANESTHESIA [Concomitant]
     Route: 008

REACTIONS (13)
  - Anaphylactic shock [Recovered/Resolved]
  - Gaze palsy [Unknown]
  - Loss of consciousness [Unknown]
  - Blood pressure immeasurable [Unknown]
  - Restlessness [Unknown]
  - Pallor [Unknown]
  - Cyanosis [Unknown]
  - Cold sweat [Unknown]
  - Faecal incontinence [Unknown]
  - Urinary incontinence [Unknown]
  - Pulse absent [Unknown]
  - Vomiting [Unknown]
  - Muscular weakness [Unknown]
